FAERS Safety Report 9264862 (Version 1)
Quarter: 2013Q2

REPORT INFORMATION
  Report Type: Spontaneous
  Country: US (occurrence: US)
  Receive Date: 20130501
  Receipt Date: 20130501
  Transmission Date: 20140414
  Serious: Yes (Other)
  Sender: FDA-Public Use
  Company Number: PHEH2013US009160

PATIENT
  Sex: Female

DRUGS (8)
  1. DIOVAN [Suspect]
     Dosage: 80 MG, UNK
  2. BENICAR [Concomitant]
     Dosage: UNK
  3. AMIODARONE [Concomitant]
     Dosage: UNK
  4. PRADAXA [Concomitant]
     Dosage: UNK
  5. GABAPENTIN [Concomitant]
     Dosage: UNK
  6. CLONAZEPAM [Concomitant]
     Dosage: UNK
  7. BUPROPION [Concomitant]
     Dosage: UNK
  8. NITROFURANTOIN MONO [Concomitant]

REACTIONS (4)
  - Atrial fibrillation [Unknown]
  - Arrhythmia [Unknown]
  - Conduction disorder [Unknown]
  - Gait disturbance [Unknown]
